FAERS Safety Report 17157611 (Version 3)
Quarter: 2019Q4

REPORT INFORMATION
  Report Type: Report from Study
  Country: FR (occurrence: FR)
  Receive Date: 20191216
  Receipt Date: 20191226
  Transmission Date: 20200122
  Serious: Yes (Death, Hospitalization)
  Sender: FDA-Public Use
  Company Number: NVSC2019FR068677

PATIENT
  Age: 77 Year
  Sex: Female

DRUGS (2)
  1. NEORAL [Suspect]
     Active Substance: CYCLOSPORINE
     Indication: RENAL TRANSPLANT
     Dosage: 40 MG
     Route: 048
  2. CERTICAN [Suspect]
     Active Substance: EVEROLIMUS
     Indication: RENAL TRANSPLANT
     Dosage: 0.75 MG, EVERY 2 DAY
     Route: 048
     Dates: start: 20170727, end: 20170809

REACTIONS (2)
  - Septic shock [Fatal]
  - Lung disorder [Fatal]

NARRATIVE: CASE EVENT DATE: 20180125
